FAERS Safety Report 8048724-1 (Version None)
Quarter: 2012Q1

REPORT INFORMATION
  Report Type: 
  Country: None (occurrence: None)
  Receive Date: 20120117
  Receipt Date: 20120109
  Transmission Date: 20120608
  Serious: Yes (Hospitalization, Congenital Anomaly, Other)
  Sender: FDA-Public Use
  Company Number: US-UCBSA-049382

PATIENT
  Sex: Male
  Weight: 3.86 kg

DRUGS (2)
  1. KEPPRA [Suspect]
     Indication: EPILEPSY
     Route: 064
     Dates: start: 20080101, end: 20090502
  2. KEPPRA XR [Suspect]
     Indication: EPILEPSY
     Route: 064
     Dates: start: 20090502, end: 20090626

REACTIONS (2)
  - RECTAL STENOSIS [None]
  - FOETAL EXPOSURE DURING PREGNANCY [None]
